FAERS Safety Report 5381322-7 (Version None)
Quarter: 2007Q2

REPORT INFORMATION
  Report Type: 
  Country: None (occurrence: None)
  Receive Date: 20070629
  Receipt Date: 20070305
  Transmission Date: 20071010
  Serious: Yes (Other)
  Sender: FDA-Public Use
  Company Number: 2007010955

PATIENT
  Sex: Female
  Weight: 66.7 kg

DRUGS (2)
  1. VISTARIL [Suspect]
     Indication: HYPERSENSITIVITY
  2. ZYRTEC [Suspect]
     Indication: HYPERSENSITIVITY

REACTIONS (1)
  - CONVULSION [None]
